FAERS Safety Report 6369707-3 (Version None)
Quarter: 2009Q3

REPORT INFORMATION
  Report Type: 
  Country: None (occurrence: None)
  Receive Date: 20090923
  Receipt Date: 20090910
  Transmission Date: 20100115
  Serious: Yes (Hospitalization, Other)
  Sender: FDA-Public Use
  Company Number: DE-PFIZER INC-2009199471

PATIENT
  Age: 79 Year

DRUGS (21)
  1. REVATIO [Suspect]
     Indication: PULMONARY ARTERIAL HYPERTENSION
     Dosage: 20 MG, 3X/DAY
     Route: 048
     Dates: start: 20060501, end: 20090301
  2. MARCUMAR [Suspect]
     Dosage: UNK, AS NEEDED (DEPENDING ON INR)
     Route: 048
     Dates: end: 20090101
  3. ALLOPURINOL [Concomitant]
     Dosage: 150/DAY (1/2 TABLET OF 300 MG  IN THE MORNING)
  4. TORASEMIDE [Concomitant]
     Dosage: 5 MG, 1X/DAY
  5. TORASEMIDE [Concomitant]
     Dosage: 10 MG, 2X/DAY
  6. TORASEMIDE [Concomitant]
     Dosage: 10 MG, 3X/DAY
  7. TORASEMIDE [Concomitant]
     Dosage: 50 MG, 2X/DAY
  8. TORASEMIDE [Concomitant]
     Dosage: 500 MG/DAY (200+200+100)
  9. RAMIPRIL [Concomitant]
     Dosage: 2.5 UNK, 1X/DAY
  10. FERROUS SULFATE TAB [Concomitant]
     Dosage: UNK
  11. FERROUS SULFATE TAB [Concomitant]
     Dosage: UNK
  12. OMEPRAZOL [Concomitant]
     Dosage: 40 MG, 1X/DAY
  13. OMEPRAZOL [Concomitant]
     Dosage: 40 MG, 2X/DAY
  14. BOSENTAN [Concomitant]
     Dosage: 125 UNK, 2X/DAY
  15. SPIRONOLACTONE [Concomitant]
     Dosage: 25 UNK, 1X/DAY
  16. PREDNISOLONE [Concomitant]
     Dosage: 20 UNK, 1X/DAY
  17. FORMOTEROL [Concomitant]
     Dosage: 6 UNK, 4 DF/DAY
  18. TIOTROPIUM BROMIDE [Concomitant]
     Dosage: UNK
  19. HYDROCHLOROTHIAZIDE [Concomitant]
     Dosage: 25 UNK, 1X/DAY
  20. NOVAMINSULFON ^BRAUN^ [Concomitant]
     Dosage: 20 UNK, 3X/DAY
  21. CANDIO-HERMAL [Concomitant]
     Dosage: 5X/DAY

REACTIONS (16)
  - ANAEMIA [None]
  - COLONIC POLYP [None]
  - DIVERTICULUM [None]
  - DUODENAL ULCER [None]
  - EPISTAXIS [None]
  - GASTRITIS HAEMORRHAGIC [None]
  - GASTROINTESTINAL HAEMORRHAGE [None]
  - HAEMOTHORAX [None]
  - MUCOSAL HAEMORRHAGE [None]
  - PLATELET DISORDER [None]
  - PULMONARY HYPERTENSION [None]
  - RENAL FAILURE ACUTE [None]
  - RIB FRACTURE [None]
  - RIGHT VENTRICULAR FAILURE [None]
  - SKIN HAEMORRHAGE [None]
  - URINARY TRACT INFECTION [None]
